FAERS Safety Report 7967201-7 (Version None)
Quarter: 2011Q4

REPORT INFORMATION
  Report Type: 
  Country: None (occurrence: None)
  Receive Date: 20111209
  Receipt Date: 20111205
  Transmission Date: 20120403
  Serious: Yes (Other)
  Sender: FDA-Public Use
  Company Number: JP-B.I. PHARMACEUTICALS,INC./RIDGEFIELD-2011-BP-27528NB

PATIENT
  Age: 9 Decade
  Sex: Female

DRUGS (4)
  1. CONIEL [Concomitant]
     Route: 048
  2. MICARDIS [Suspect]
     Indication: HYPERTENSION
     Dosage: 40 MG
     Route: 048
  3. MICARDIS [Suspect]
     Dosage: 40 MG
     Route: 048
  4. CONIEL [Concomitant]
     Route: 048

REACTIONS (1)
  - LOSS OF CONSCIOUSNESS [None]
